FAERS Safety Report 10270873 (Version 1)
Quarter: 2014Q1

REPORT INFORMATION
  Report Type: Spontaneous
  Country: US (occurrence: None)
  Receive Date: 20140306
  Receipt Date: 20140306
  Transmission Date: 20141002
  Serious: Yes (Hospitalization)
  Sender: FDA-Public Use
  Company Number: 163-21880-13082329

PATIENT
  Age: 72 Year
  Sex: Male
  Weight: 70.3 kg

DRUGS (3)
  1. REVLIMID [Suspect]
     Indication: MYELODYSPLASTIC SYNDROME
     Dosage: 5 MG, 1 IN 1 D, PO
     Route: 048
     Dates: start: 20120511
  2. PLAVIX ( CLOPIDOGREL SULFATE) (UNKNOWN) [Concomitant]
  3. ASA ( ACETYLSALICYLIC ACID) [Concomitant]

REACTIONS (2)
  - Gastrointestinal haemorrhage [None]
  - Pneumonia legionella [None]
